FAERS Safety Report 15668010 (Version 1)
Quarter: 2018Q4

REPORT INFORMATION
  Report Type: Report from Study
  Country: CN (occurrence: CN)
  Receive Date: 20181128
  Receipt Date: 20181128
  Transmission Date: 20190205
  Serious: Yes (Hospitalization)
  Sender: FDA-Public Use
  Company Number: CN-AMGEN-CHNCT2018169394

PATIENT
  Age: 55 Year
  Sex: Female

DRUGS (22)
  1. RECOMBINANT HUMAN ERYTHROPOIETIN [Concomitant]
     Active Substance: ERYTHROPOIETIN
     Indication: NEPHROGENIC ANAEMIA
     Dosage: 3000 UNIT, 3 TIMES/WK
     Route: 042
  2. TRIMETAZIDINE [Concomitant]
     Active Substance: TRIMETAZIDINE
     Indication: CORONARY ARTERY DISEASE
     Dosage: 20 MG, BID
     Route: 048
  3. FOLIC ACID. [Concomitant]
     Active Substance: FOLIC ACID
     Indication: ANAEMIA
     Dosage: 5 MG, BID
     Route: 048
  4. CLONAZEPAM. [Concomitant]
     Active Substance: CLONAZEPAM
     Indication: INSOMNIA
     Dosage: 2 MG, 3 TIMES/WK
     Route: 048
  5. DANSHEN [Concomitant]
     Active Substance: HERBALS
     Indication: CORONARY ARTERY DISEASE
     Dosage: 10 PILLS IN NECESSITY
  6. CINACALCET HCL [Suspect]
     Active Substance: CINACALCET HYDROCHLORIDE
     Indication: HYPERPARATHYROIDISM SECONDARY
     Dosage: 25 MG, UNK
     Route: 048
     Dates: start: 20180627
  7. METOPROLOL TARTRATE. [Concomitant]
     Active Substance: METOPROLOL TARTRATE
     Indication: HYPERTENSION
     Dosage: 6.25 MG, BID
     Route: 048
  8. GABAPENTIN. [Concomitant]
     Active Substance: GABAPENTIN
     Indication: HYPERSENSITIVITY
     Dosage: 0.3 G, 3 TIMES/WK
     Route: 048
  9. NIFEDIPINE. [Concomitant]
     Active Substance: NIFEDIPINE
     Indication: HYPERTENSION
     Dosage: 30 MG, BID
     Route: 048
  10. IRON SORBITEX [Concomitant]
     Active Substance: IRON SORBITEX
     Indication: ANAEMIA
     Dosage: 100 G, QMO
     Route: 042
  11. NICORANDIL [Concomitant]
     Active Substance: NICORANDIL
     Indication: HYPERTENSION
     Dosage: 5 MG, BID
     Route: 048
  12. ASPIRIN ENTERIC COATED K.P. [Concomitant]
     Active Substance: ASPIRIN
     Indication: HYPERTENSION
     Dosage: 0.1 G, QD
     Route: 048
  13. SODIUM BICARBONATE. [Concomitant]
     Active Substance: SODIUM BICARBONATE
     Indication: METABOLIC ACIDOSIS
     Dosage: 2.0 G, QD
     Route: 048
  14. VITAMIN C [Concomitant]
     Active Substance: ASCORBIC ACID
     Indication: MALNUTRITION
     Dosage: 0.1 G, TID
     Route: 048
  15. CILOSTAZOL. [Concomitant]
     Active Substance: CILOSTAZOL
     Indication: PERIPHERAL VASCULAR DISORDER
     Dosage: 50 MG, 3 TIMES/WK
     Route: 048
  16. VITAMIN B1 [Concomitant]
     Active Substance: THIAMINE HYDROCHLORIDE
     Indication: MALNUTRITION
     Dosage: 10 MG, TID
     Route: 048
  17. CALCIUM CARBONATE AND VITAMIN D [Concomitant]
     Active Substance: CALCIUM CARBONATE\VITAMIN D
     Indication: CHRONIC KIDNEY DISEASE-MINERAL AND BONE DISORDER
     Dosage: 1000 MG, TID
     Route: 048
  18. SARPOGRELATE [Concomitant]
     Active Substance: SARPOGRELATE
     Indication: PERIPHERAL VASCULAR DISORDER
     Dosage: 100 MG, TID
     Route: 048
  19. PRAVASTATIN SODIUM. [Concomitant]
     Active Substance: PRAVASTATIN SODIUM
     Indication: HYPERLIPIDAEMIA
     Dosage: 20 MG, QD
     Route: 048
  20. ESTAZOLAM. [Concomitant]
     Active Substance: ESTAZOLAM
     Indication: INSOMNIA
     Dosage: 1 MG, 3 TIMES/WK
     Route: 048
  21. LANTHANUM CARBONATE. [Concomitant]
     Active Substance: LANTHANUM CARBONATE
     Indication: CHRONIC KIDNEY DISEASE-MINERAL AND BONE DISORDER
     Dosage: 1 MG, TID
     Route: 048
  22. VITAMIN B2 [Concomitant]
     Active Substance: RIBOFLAVIN
     Indication: MALNUTRITION
     Dosage: 10 MG, TID
     Route: 048

REACTIONS (1)
  - Angina unstable [Recovered/Resolved]
